FAERS Safety Report 11487139 (Version 6)
Quarter: 2016Q1

REPORT INFORMATION
  Report Type: Spontaneous
  Country: US (occurrence: US)
  Receive Date: 20150910
  Receipt Date: 20160302
  Transmission Date: 20160525
  Serious: No
  Sender: FDA-Public Use
  Company Number: US-PFIZER INC-2015298810

PATIENT
  Age: 80 Year
  Sex: Female
  Weight: 51 kg

DRUGS (6)
  1. AFINITOR [Suspect]
     Active Substance: EVEROLIMUS
     Dosage: 2.5 MG, 1X/DAY
     Dates: start: 20150320, end: 201504
  2. AROMASIN [Suspect]
     Active Substance: EXEMESTANE
     Dosage: 25 MG, DAILY
     Route: 048
     Dates: start: 201504, end: 201504
  3. AFINITOR [Suspect]
     Active Substance: EVEROLIMUS
     Indication: BREAST CANCER METASTATIC
     Dosage: 10 MG, 1X/DAY
     Route: 048
     Dates: start: 20140419, end: 201406
  4. AROMASIN [Suspect]
     Active Substance: EXEMESTANE
     Indication: BREAST CANCER METASTATIC
     Dosage: 25 MG, DAILY
     Route: 048
     Dates: start: 20140416, end: 2015
  5. AROMASIN [Suspect]
     Active Substance: EXEMESTANE
     Dosage: UNK
     Route: 048
     Dates: start: 20150416
  6. AFINITOR [Suspect]
     Active Substance: EVEROLIMUS
     Dosage: 5 MG, 1X/DAY
     Dates: start: 20140620

REACTIONS (8)
  - Rhinorrhoea [Unknown]
  - Disease progression [Unknown]
  - Breast cancer metastatic [Unknown]
  - Aphthous ulcer [Recovered/Resolved]
  - Dizziness [Unknown]
  - Dry mouth [Unknown]
  - Fatigue [Unknown]
  - Nail disorder [Unknown]

NARRATIVE: CASE EVENT DATE: 20150407
